FAERS Safety Report 4546628-X (Version None)
Quarter: 2005Q1

REPORT INFORMATION
  Report Type: 
  Country: None (occurrence: None)
  Receive Date: 20050103
  Receipt Date: 20041214
  Transmission Date: 20050727
  Serious: Yes (Hospitalization, Other)
  Sender: FDA-Public Use
  Company Number: US_0412109293

PATIENT
  Age: 78 Year
  Sex: Female

DRUGS (5)
  1. PERGOLIDE MESYLATE [Suspect]
     Indication: PARKINSON'S DISEASE
     Dosage: 3 MG DAY
     Dates: start: 19990101, end: 20020101
  2. LEVODOPA W/BENSERAZIDE [Concomitant]
  3. BROMOCRIPTINE [Concomitant]
  4. SELEGILINE HCL [Concomitant]
  5. AMLODIPINE [Concomitant]

REACTIONS (31)
  - ALANINE AMINOTRANSFERASE INCREASED [None]
  - ANGIOPATHY [None]
  - ANOREXIA [None]
  - ASPARTATE AMINOTRANSFERASE INCREASED [None]
  - BACK PAIN [None]
  - BLOOD ALKALINE PHOSPHATASE INCREASED [None]
  - BLOOD CHOLESTEROL DECREASED [None]
  - BLOOD LACTATE DEHYDROGENASE INCREASED [None]
  - BLOOD SODIUM DECREASED [None]
  - BREATH SOUNDS DECREASED [None]
  - BUNDLE BRANCH BLOCK LEFT [None]
  - CARDIAC MURMUR [None]
  - CELLS IN URINE [None]
  - DEEP VEIN THROMBOSIS [None]
  - ECCHYMOSIS [None]
  - ERYTHEMA [None]
  - HAEMATOCRIT DECREASED [None]
  - HYDRONEPHROSIS [None]
  - MASS [None]
  - NAUSEA [None]
  - OEDEMA PERIPHERAL [None]
  - PALLOR [None]
  - PARKINSON'S DISEASE [None]
  - PERICARDIAL EFFUSION [None]
  - PLEURAL EFFUSION [None]
  - PLEURAL FIBROSIS [None]
  - RETROPERITONEAL FIBROSIS [None]
  - SERUM FERRITIN INCREASED [None]
  - SOFT TISSUE DISORDER [None]
  - TRI-IODOTHYRONINE INCREASED [None]
  - VOMITING [None]
